FAERS Safety Report 4996197-5 (Version None)
Quarter: 2006Q2

REPORT INFORMATION
  Report Type: 
  Country: None (occurrence: None)
  Receive Date: 20060504
  Receipt Date: 20060421
  Transmission Date: 20061013
  Serious: Yes (Hospitalization)
  Sender: FDA-Public Use
  Company Number: 200611635GDS

PATIENT
  Age: 71 Year
  Sex: Male
  Weight: 75 kg

DRUGS (5)
  1. ASPIRIN [Suspect]
     Indication: PERIPHERAL VASCULAR DISORDER
     Dosage: 100 MG, TOTAL DAILY, ORAL
     Route: 048
  2. ZYVOX [Suspect]
     Indication: INJURY
     Dosage: SEE IMAGE
     Route: 048
     Dates: start: 20051201, end: 20060204
  3. ZYVOX [Suspect]
     Indication: INJURY
     Dosage: SEE IMAGE
     Route: 048
     Dates: start: 20060215, end: 20060227
  4. CLAMOXYL (AMOXICILLIN) [Suspect]
     Indication: INJURY
     Dosage: SEE IMAGE
     Route: 048
     Dates: start: 20051201, end: 20060204
  5. CLAMOXYL (AMOXICILLIN) [Suspect]
     Indication: INJURY
     Dosage: SEE IMAGE
     Route: 048
     Dates: start: 20060215, end: 20060227

REACTIONS (5)
  - ANAEMIA [None]
  - GASTROINTESTINAL HAEMORRHAGE [None]
  - HYPOTENSION [None]
  - HYPOVOLAEMIC SHOCK [None]
  - THROMBOCYTOPENIA [None]
